FAERS Safety Report 23605316 (Version 1)
Quarter: 2024Q1

REPORT INFORMATION
  Report Type: Spontaneous
  Country: US (occurrence: None)
  Receive Date: 20240306
  Receipt Date: 20240306
  Transmission Date: 20240410
  Serious: Yes (Other)
  Sender: FDA-Public Use
  Company Number: None

PATIENT
  Age: 54 Year
  Sex: Female

DRUGS (1)
  1. MEKINIST [Suspect]
     Active Substance: TRAMETINIB DIMETHYL SULFOXIDE
     Indication: Ovarian cancer
     Dosage: FREQUENCY : DAILY;?
     Dates: start: 20231124

REACTIONS (9)
  - Fatigue [None]
  - Dry skin [None]
  - Nail disorder [None]
  - Diarrhoea [None]
  - Dizziness [None]
  - Dehydration [None]
  - Loss of consciousness [None]
  - Depressed mood [None]
  - Food craving [None]

NARRATIVE: CASE EVENT DATE: 20240306
